FAERS Safety Report 18476451 (Version 1)
Quarter: 2020Q4

REPORT INFORMATION
  Report Type: Report from Study
  Country: GB (occurrence: GB)
  Receive Date: 20201106
  Receipt Date: 20201106
  Transmission Date: 20210114
  Serious: Yes (Other)
  Sender: FDA-Public Use
  Company Number: GB-AUROBINDO-AUR-APL-2020-054487

PATIENT

DRUGS (9)
  1. MELPHALAN. [Suspect]
     Active Substance: MELPHALAN
     Indication: PLASMA CELL DISORDER
     Dosage: UNK
     Route: 065
  2. PREDNISOLONE. [Suspect]
     Active Substance: PREDNISOLONE
     Indication: PLASMACYTOMA
  3. BORTEZOMIBE [Suspect]
     Active Substance: BORTEZOMIB
     Indication: PLASMA CELL DISORDER
     Dosage: UNK
     Route: 058
  4. PREDNISOLONE. [Suspect]
     Active Substance: PREDNISOLONE
     Indication: PLASMA CELL DISORDER
     Dosage: UNK
     Route: 065
  5. MELPHALAN. [Suspect]
     Active Substance: MELPHALAN
     Indication: PLASMA CELL MYELOMA
  6. MELPHALAN. [Suspect]
     Active Substance: MELPHALAN
     Indication: PLASMACYTOMA
  7. BORTEZOMIBE [Suspect]
     Active Substance: BORTEZOMIB
     Indication: PLASMA CELL MYELOMA
     Dosage: UNK
     Route: 065
  8. PREDNISOLONE. [Suspect]
     Active Substance: PREDNISOLONE
     Indication: PLASMA CELL MYELOMA
  9. BORTEZOMIBE [Suspect]
     Active Substance: BORTEZOMIB
     Indication: PLASMACYTOMA

REACTIONS (1)
  - Gastrointestinal disorder [Unknown]
